FAERS Safety Report 16972902 (Version 1)
Quarter: 2019Q4

REPORT INFORMATION
  Report Type: Report from Study
  Country: CN (occurrence: CN)
  Receive Date: 20191030
  Receipt Date: 20191030
  Transmission Date: 20200122
  Serious: Yes (Death)
  Sender: FDA-Public Use
  Company Number: CN-ROCHE-2451398

PATIENT

DRUGS (11)
  1. METHYLPREDNISOLONE. [Suspect]
     Active Substance: METHYLPREDNISOLONE
     Indication: RENAL TRANSPLANT
     Route: 042
  2. THYMOSIN [Concomitant]
     Active Substance: THYMOSIN
     Indication: PRODUCT USED FOR UNKNOWN INDICATION
     Route: 058
  3. MYCOPHENOLATE MOFETIL. [Suspect]
     Active Substance: MYCOPHENOLATE MOFETIL
     Indication: RENAL TRANSPLANT
     Route: 048
  4. SOMATOSTATIN [Concomitant]
     Active Substance: SOMATOSTATIN
     Route: 041
  5. MYCOPHENOLATE MOFETIL. [Suspect]
     Active Substance: MYCOPHENOLATE MOFETIL
     Dosage: 1500 MG/D WAS EQUAL DIVIDED INTO TWICE PER DAY
     Route: 048
  6. PREDNISONE. [Suspect]
     Active Substance: PREDNISONE
     Indication: RENAL TRANSPLANT
     Route: 048
  7. METHYLPREDNISOLONE. [Suspect]
     Active Substance: METHYLPREDNISOLONE
     Route: 042
  8. CYCLOSPORIN [Suspect]
     Active Substance: CYCLOSPORINE
     Indication: RENAL TRANSPLANT
     Dosage: 5MG/KG PER DAY
     Route: 048
  9. CYCLOSPORIN [Suspect]
     Active Substance: CYCLOSPORINE
     Dosage: ADJUSTED ACCORDING TO ITS TROUGH CONCENTRATION AT 150-250 NG/ML MFPIA
     Route: 048
  10. PREDNISONE. [Suspect]
     Active Substance: PREDNISONE
     Dosage: REDUCED BY 5 MG EVERY TWO WEEKS UP TO A MAINTENANCE DOSE OF 15 MG/D
     Route: 048
  11. GANCICLOVIR. [Concomitant]
     Active Substance: GANCICLOVIR
     Indication: CYTOMEGALOVIRUS INFECTION
     Route: 041

REACTIONS (5)
  - Interstitial lung disease [Fatal]
  - Respiratory failure [Fatal]
  - Cytomegalovirus infection [Fatal]
  - Hepatic failure [Fatal]
  - Haemorrhagic necrotic pancreatitis [Fatal]
